FAERS Safety Report 8768509 (Version 2)
Quarter: 2013Q2

REPORT INFORMATION
  Report Type: Report from Study
  Country: CA (occurrence: CA)
  Receive Date: 20120905
  Receipt Date: 20130429
  Transmission Date: 20140414
  Serious: Yes (Other)
  Sender: FDA-Public Use
  Company Number: CA-ROCHE-1108747

PATIENT
  Age: 66 Year
  Sex: Female
  Weight: 92 kg

DRUGS (11)
  1. ACTEMRA [Suspect]
     Indication: RHEUMATOID ARTHRITIS
     Route: 042
     Dates: start: 20111206
  2. ACTEMRA [Suspect]
     Route: 042
     Dates: start: 20120723
  3. ACTEMRA [Suspect]
     Route: 042
     Dates: start: 20121010
  4. PREDNISONE [Suspect]
     Indication: PRODUCT USED FOR UNKNOWN INDICATION
     Route: 065
  5. LIPITOR [Concomitant]
  6. GLUCONORM [Concomitant]
  7. ELAVIL (CANADA) [Concomitant]
  8. PREVACID [Concomitant]
  9. METFORMIN [Concomitant]
     Indication: DIABETES MELLITUS
  10. TYLENOL [Concomitant]
     Route: 048
     Dates: start: 20130130
  11. BENADRYL [Concomitant]
     Route: 042
     Dates: start: 20130130

REACTIONS (18)
  - Diverticulitis [Recovered/Resolved]
  - Diarrhoea [Recovered/Resolved]
  - Constipation [Recovered/Resolved]
  - Weight decreased [Unknown]
  - Fatigue [Not Recovered/Not Resolved]
  - Arthralgia [Not Recovered/Not Resolved]
  - Irritable bowel syndrome [Recovered/Resolved]
  - Hypertension [Unknown]
  - Oedema peripheral [Unknown]
  - Cough [Unknown]
  - Pharyngeal oedema [Unknown]
  - Ear infection [Unknown]
  - Hepatic enzyme increased [Unknown]
  - Local swelling [Unknown]
  - Dyspnoea [Unknown]
  - Pain in extremity [Unknown]
  - Local swelling [Unknown]
  - Joint swelling [Unknown]
